FAERS Safety Report 4427790-6 (Version None)
Quarter: 2004Q3

REPORT INFORMATION
  Report Type: 
  Country: None (occurrence: None)
  Receive Date: 20040816
  Receipt Date: 20040816
  Transmission Date: 20050211
  Serious: No
  Sender: FDA-Public Use
  Company Number: None

PATIENT
  Sex: Male

DRUGS (1)
  1. CYPHER SIROLIMUS-ELUTING CORDIS [Suspect]
     Dates: start: 20040624, end: 20040624

REACTIONS (5)
  - BLOOD PRESSURE DECREASED [None]
  - BRADYCARDIA [None]
  - DEVICE FAILURE [None]
  - ELECTROCARDIOGRAM ST SEGMENT ELEVATION [None]
  - PHARMACEUTICAL PRODUCT COMPLAINT [None]
